FAERS Safety Report 5689885-9 (Version None)
Quarter: 2008Q1

REPORT INFORMATION
  Report Type: 
  Country: None (occurrence: None)
  Receive Date: 20080331
  Receipt Date: 20080331
  Transmission Date: 20080703
  Serious: No
  Sender: FDA-Public Use
  Company Number: None

PATIENT
  Age: 47 Year
  Sex: Female
  Weight: 68.0396 kg

DRUGS (1)
  1. CHANTIX [Suspect]
     Indication: SMOKING CESSATION THERAPY
     Dates: start: 20071112, end: 20080201

REACTIONS (6)
  - AGGRESSION [None]
  - ALCOHOL USE [None]
  - ANXIETY [None]
  - DEPRESSION [None]
  - LOSS OF CONSCIOUSNESS [None]
  - NIGHTMARE [None]
